FAERS Safety Report 17050196 (Version 1)
Quarter: 2019Q4

REPORT INFORMATION
  Report Type: Spontaneous
  Country: US (occurrence: US)
  Receive Date: 20191119
  Receipt Date: 20191119
  Transmission Date: 20200122
  Serious: Yes (Hospitalization)
  Sender: FDA-Public Use
  Company Number: US-JNJFOC-20191112939

PATIENT
  Age: 4 Decade
  Sex: Female
  Weight: 43.13 kg

DRUGS (1)
  1. ELMIRON [Suspect]
     Active Substance: PENTOSAN POLYSULFATE SODIUM
     Indication: CYSTITIS INTERSTITIAL
     Route: 048
     Dates: start: 2014, end: 2018

REACTIONS (2)
  - Dysuria [Unknown]
  - Endometriosis [Unknown]

NARRATIVE: CASE EVENT DATE: 2014
